FAERS Safety Report 5219465-0 (Version None)
Quarter: 2007Q1

REPORT INFORMATION
  Report Type: 
  Country: None (occurrence: None)
  Receive Date: 20070125
  Receipt Date: 20070117
  Transmission Date: 20070707
  Serious: Yes (Disabling, Other)
  Sender: FDA-Public Use
  Company Number: US-PFIZER INC-2007005018

PATIENT
  Sex: Female
  Weight: 77.1 kg

DRUGS (5)
  1. ZOLOFT [Suspect]
     Indication: DEPRESSION
  2. LYRICA [Concomitant]
  3. LORTAB [Concomitant]
  4. XANAX [Concomitant]
  5. THYROID TAB [Concomitant]

REACTIONS (3)
  - DRUG INEFFECTIVE [None]
  - GAIT DISTURBANCE [None]
  - NEUROPATHY [None]
